FAERS Safety Report 22121213 (Version 1)
Quarter: 2023Q1

REPORT INFORMATION
  Report Type: Spontaneous
  Country: US (occurrence: US)
  Receive Date: 20230321
  Receipt Date: 20230321
  Transmission Date: 20230418
  Serious: Yes (Other)
  Sender: FDA-Public Use
  Company Number: US-SA-SAC20230320001000

PATIENT
  Age: 55 Year
  Sex: Female

DRUGS (1)
  1. DUPIXENT [Suspect]
     Active Substance: DUPILUMAB
     Indication: Dermatitis atopic
     Dosage: UNK
     Route: 058
     Dates: start: 20220422, end: 20221123

REACTIONS (7)
  - Atopic keratoconjunctivitis [Recovering/Resolving]
  - Conjunctivitis [Recovering/Resolving]
  - Conjunctival hyperaemia [Recovering/Resolving]
  - Eye pruritus [Recovering/Resolving]
  - Ciliary hyperaemia [Recovering/Resolving]
  - Abdominal discomfort [Recovered/Resolved]
  - Abdominal distension [Recovered/Resolved]

NARRATIVE: CASE EVENT DATE: 20220101
